FAERS Safety Report 9959193 (Version 1)
Quarter: 2014Q1

REPORT INFORMATION
  Report Type: Spontaneous
  Country: US (occurrence: None)
  Receive Date: 20140228
  Receipt Date: 20140228
  Transmission Date: 20141002
  Serious: Yes (Disabling, Other)
  Sender: FDA-Public Use
  Company Number: None

PATIENT
  Age: 57 Year
  Sex: Female
  Weight: 77.11 kg

DRUGS (1)
  1. DULOXETINE HCL [Suspect]
     Indication: PAIN MANAGEMENT
     Dosage: 2 CAPS ONCE DAILY TAKEN BY MOUTH
     Route: 048
     Dates: start: 20140208, end: 20140227

REACTIONS (6)
  - Product substitution issue [None]
  - Tremor [None]
  - Anxiety [None]
  - Insomnia [None]
  - Hypervigilance [None]
  - Chest discomfort [None]
